FAERS Safety Report 16187074 (Version 1)
Quarter: 2019Q2

REPORT INFORMATION
  Report Type: Spontaneous
  Country: US (occurrence: US)
  Receive Date: 20190411
  Receipt Date: 20190411
  Transmission Date: 20190711
  Serious: Yes (Death, Hospitalization, Other)
  Sender: FDA-Public Use
  Company Number: US-GILEAD-2019-0401415

PATIENT

DRUGS (3)
  1. CYCLOPHOSPHAMIDE. [Concomitant]
     Active Substance: CYCLOPHOSPHAMIDE
     Indication: PRODUCT USED FOR UNKNOWN INDICATION
     Dosage: UNK
     Route: 042
     Dates: start: 20181222, end: 20181223
  2. YESCARTA [Suspect]
     Active Substance: AXICABTAGENE CILOLEUCEL
     Indication: PRODUCT USED FOR UNKNOWN INDICATION
     Dosage: SINGLE DOSE
     Route: 042
     Dates: start: 20181226, end: 20181226
  3. FLUDARABINE [FLUDARABINE PHOSPHATE] [Concomitant]
     Indication: PRODUCT USED FOR UNKNOWN INDICATION
     Dosage: UNK
     Route: 042
     Dates: start: 20181222, end: 20181223

REACTIONS (17)
  - Melaena [Not Recovered/Not Resolved]
  - Thrombocytopenia [Unknown]
  - Lethargy [Not Recovered/Not Resolved]
  - Disease progression [Fatal]
  - Neurotoxicity [Unknown]
  - Neutropenia [Unknown]
  - Anaemia [Unknown]
  - Pleural effusion [Not Recovered/Not Resolved]
  - Cytokine release syndrome [Unknown]
  - Coagulopathy [Not Recovered/Not Resolved]
  - Constipation [Unknown]
  - Syncope [Recovered/Resolved]
  - Acute kidney injury [Not Recovered/Not Resolved]
  - Fall [Unknown]
  - Adrenal insufficiency [Unknown]
  - Haematemesis [Unknown]
  - Confusional state [Not Recovered/Not Resolved]

NARRATIVE: CASE EVENT DATE: 201812
